FAERS Safety Report 13987075 (Version 1)
Quarter: 2017Q3

REPORT INFORMATION
  Report Type: Spontaneous
  Country: US (occurrence: US)
  Receive Date: 20170919
  Receipt Date: 20170919
  Transmission Date: 20171128
  Serious: No
  Sender: FDA-Public Use
  Company Number: US-ALLERGAN-1731493US

PATIENT
  Age: 32 Year
  Sex: Female

DRUGS (2)
  1. TERAZOL 3 [Concomitant]
     Active Substance: TERCONAZOLE
  2. LILETTA [Suspect]
     Active Substance: LEVONORGESTREL
     Indication: CONTRACEPTION
     Dosage: 52 MG
     Route: 015
     Dates: start: 20170706, end: 20170711

REACTIONS (1)
  - Device expulsion [Unknown]

NARRATIVE: CASE EVENT DATE: 20170711
